FAERS Safety Report 21634453 (Version 1)
Quarter: 2022Q4

REPORT INFORMATION
  Report Type: Spontaneous
  Country: US (occurrence: US)
  Receive Date: 20221123
  Receipt Date: 20221123
  Transmission Date: 20230112
  Serious: No
  Sender: FDA-Public Use
  Company Number: US-BRISTOL-MYERS SQUIBB COMPANY-2022-142039

PATIENT
  Age: 54 Year
  Sex: Male

DRUGS (2)
  1. POMALYST [Suspect]
     Active Substance: POMALIDOMIDE
     Indication: Product used for unknown indication
     Dosage: 4 MG, DAILY FOR 21 DAYS
     Route: 048
     Dates: start: 20210112
  2. POMALYST [Suspect]
     Active Substance: POMALIDOMIDE
     Dosage: 3 MG, DAILY FOR 21 DAYS
     Route: 048

REACTIONS (1)
  - Neutrophil count abnormal [Unknown]

NARRATIVE: CASE EVENT DATE: 20221121
